FAERS Safety Report 10050659 (Version 1)
Quarter: 2014Q2

REPORT INFORMATION
  Report Type: Spontaneous
  Country: US (occurrence: US)
  Receive Date: 20140401
  Receipt Date: 20140401
  Transmission Date: 20141212
  Serious: No
  Sender: FDA-Public Use
  Company Number: US-ASTRAZENECA-2013SE63906

PATIENT
  Age: 39 Year
  Sex: Female
  Weight: 90.7 kg

DRUGS (3)
  1. NEXIUM [Suspect]
     Route: 048
     Dates: start: 20130812, end: 20130812
  2. ZYRTEC [Concomitant]
     Indication: HYPERSENSITIVITY
     Route: 048
  3. ADVAIR [Concomitant]
     Indication: ASTHMA
     Dosage: 1 PUFF 250/50 DAILY
     Route: 055
     Dates: start: 2010

REACTIONS (2)
  - Nausea [Unknown]
  - Intentional product misuse [Unknown]
